FAERS Safety Report 5047022-8 (Version None)
Quarter: 2006Q3

REPORT INFORMATION
  Report Type: 
  Country: None (occurrence: None)
  Receive Date: 20060703
  Receipt Date: 20060622
  Transmission Date: 20061208
  Serious: Yes (Death)
  Sender: FDA-Public Use
  Company Number: 2006081160

PATIENT
  Sex: Male

DRUGS (2)
  1. CELEBREX [Suspect]
     Dates: start: 20020101
  2. BEXTRA [Suspect]
     Dates: start: 20020101

REACTIONS (1)
  - CEREBROVASCULAR ACCIDENT [None]
